FAERS Safety Report 8603998-0 (Version None)
Quarter: 2012Q3

REPORT INFORMATION
  Report Type: 
  Country: None (occurrence: None)
  Receive Date: 20120820
  Receipt Date: 20120808
  Transmission Date: 20120928
  Serious: Yes (Hospitalization, Other)
  Sender: FDA-Public Use
  Company Number: US-BIOGENIDEC-2012BI024584

PATIENT
  Age: 40 Year
  Sex: Female

DRUGS (5)
  1. GABAPENTIN [Concomitant]
     Indication: PAIN IN EXTREMITY
     Route: 048
  2. TYSABRI [Suspect]
     Indication: MULTIPLE SCLEROSIS
     Route: 042
     Dates: start: 20110310, end: 20120323
  3. LYRICA [Concomitant]
     Indication: PAIN IN EXTREMITY
     Route: 048
  4. OXYCODONE HCL [Concomitant]
     Route: 048
  5. GABAPENTIN [Concomitant]
     Route: 048

REACTIONS (5)
  - PAIN [None]
  - BLADDER SPASM [None]
  - MUSCLE TWITCHING [None]
  - MULTIPLE SCLEROSIS RELAPSE [None]
  - SUICIDAL IDEATION [None]
